FAERS Safety Report 18950163 (Version 1)
Quarter: 2021Q1

REPORT INFORMATION
  Report Type: Spontaneous
  Country: CA (occurrence: CA)
  Receive Date: 20210228
  Receipt Date: 20210228
  Transmission Date: 20210420
  Serious: Yes (Hospitalization)
  Sender: FDA-Public Use
  Company Number: CA-TEVA-2021-CA-1883481

PATIENT
  Age: 74 Year
  Sex: Male

DRUGS (9)
  1. PREDNISONE. [Suspect]
     Active Substance: PREDNISONE
     Dosage: 50 MILLIGRAM DAILY;
     Route: 048
  2. LORAZEPAM. [Concomitant]
     Active Substance: LORAZEPAM
  3. TAMSULOSIN CR [Concomitant]
     Active Substance: TAMSULOSIN
     Dosage: TABLET (EXTENDED RELEASE
  4. AMLODIPINE [Concomitant]
     Active Substance: AMLODIPINE BESYLATE
  5. ATORVASTATIN [Concomitant]
     Active Substance: ATORVASTATIN
  6. VITAMIN D [Concomitant]
     Active Substance: VITAMIN D NOS
  7. LINAGLIPTIN [Concomitant]
     Active Substance: LINAGLIPTIN
  8. ALLOPURINOL. [Concomitant]
     Active Substance: ALLOPURINOL
  9. GLICLAZIDE MR [Concomitant]
     Active Substance: GLICLAZIDE

REACTIONS (3)
  - Haematoma [Recovering/Resolving]
  - Melaena [Recovering/Resolving]
  - Ulcer [Recovering/Resolving]
